FAERS Safety Report 4985929-8 (Version None)
Quarter: 2006Q2

REPORT INFORMATION
  Report Type: 
  Country: None (occurrence: None)
  Receive Date: 20060421
  Receipt Date: 20060411
  Transmission Date: 20061013
  Serious: Yes (Hospitalization)
  Sender: FDA-Public Use
  Company Number: 2006032627

PATIENT
  Age: 57 Year
  Sex: Male
  Weight: 63.2 kg

DRUGS (6)
  1. CABERGOLINE [Suspect]
     Indication: PARKINSON'S DISEASE
     Dosage: 0.25 MG, 1 D, ORAL
     Route: 048
     Dates: start: 20050901, end: 20051205
  2. SELEGILINE HYDROCHLORIDE (SELEGILINE HYDROCHLORIDE) [Concomitant]
  3. NAUZELIN (DOMPERIDONE) [Concomitant]
  4. PERMAX [Concomitant]
  5. LEVODOPA-CARBIDOPA (CARBIDOPA, LEVODOPA) [Concomitant]
  6. SYMMETREL [Concomitant]

REACTIONS (3)
  - CONDITION AGGRAVATED [None]
  - PARKINSON'S DISEASE [None]
  - SALIVARY HYPERSECRETION [None]
